FAERS Safety Report 23052181 (Version 3)
Quarter: 2024Q3

REPORT INFORMATION
  Report Type: Spontaneous
  Country: ZA (occurrence: ZA)
  Receive Date: 20231010
  Receipt Date: 20240826
  Transmission Date: 20241017
  Serious: Yes (Other)
  Sender: CELLTRION
  Company Number: ZA-CELLTRION INC.-2022ZA000492

PATIENT

DRUGS (8)
  1. INFLIXIMAB [Suspect]
     Active Substance: INFLIXIMAB
     Indication: Ankylosing spondylitis
     Dosage: 100 MG (8 WEEKLY INFUSIONS)
     Route: 042
     Dates: start: 20210324
  2. INFLIXIMAB [Suspect]
     Active Substance: INFLIXIMAB
     Dosage: 100 MG (8 WEEKLY INFUSIONS)
     Route: 042
     Dates: start: 20210519
  3. INFLIXIMAB [Suspect]
     Active Substance: INFLIXIMAB
     Dosage: 100 MG (8 WEEKLY INFUSIONS)
     Route: 042
     Dates: start: 20210714
  4. INFLIXIMAB [Suspect]
     Active Substance: INFLIXIMAB
     Dosage: 100 MG (8 WEEKLY INFUSIONS)
     Route: 042
     Dates: start: 20210908
  5. INFLIXIMAB [Suspect]
     Active Substance: INFLIXIMAB
     Dosage: 100 MG (8 WEEKLY INFUSIONS)
     Route: 042
     Dates: start: 20211110
  6. INFLIXIMAB [Suspect]
     Active Substance: INFLIXIMAB
     Dosage: 100 MG (8 WEEKLY INFUSIONS)
     Route: 042
     Dates: start: 20220121
  7. INFLIXIMAB [Suspect]
     Active Substance: INFLIXIMAB
     Dosage: UNK
     Dates: start: 20230331
  8. METHOTREXATE [Concomitant]
     Active Substance: METHOTREXATE
     Indication: Ankylosing spondylitis
     Dosage: 15 MG BD

REACTIONS (12)
  - Pneumonia [Recovering/Resolving]
  - Malaise [Not Recovered/Not Resolved]
  - Illness [Recovering/Resolving]
  - Gastrointestinal infection [Recovering/Resolving]
  - Inflammation [Not Recovered/Not Resolved]
  - Nasopharyngitis [Not Recovered/Not Resolved]
  - Pyrexia [Not Recovered/Not Resolved]
  - Influenza [Recovering/Resolving]
  - Chest pain [Recovering/Resolving]
  - H1N1 influenza [Recovering/Resolving]
  - Infection [Unknown]
  - Intentional dose omission [Unknown]

NARRATIVE: CASE EVENT DATE: 20220117
